FAERS Safety Report 17982654 (Version 1)
Quarter: 2020Q3

REPORT INFORMATION
  Report Type: Spontaneous
  Country: US (occurrence: US)
  Receive Date: 20200706
  Receipt Date: 20200706
  Transmission Date: 20201103
  Serious: Yes (Other)
  Sender: FDA-Public Use
  Company Number: US-GLENMARK PHARMACEUTICALS-2020GMK047718

PATIENT

DRUGS (2)
  1. MUPIROCIN OINTMENT USP, 2% [Suspect]
     Active Substance: MUPIROCIN
     Indication: PARONYCHIA
     Dosage: UNK
     Route: 061
  2. MUPIROCIN OINTMENT USP, 2% [Suspect]
     Active Substance: MUPIROCIN
     Dosage: UNK (ACCIDENTAL INGESTION AND SPLASHED IN THE EYES)
     Route: 061
     Dates: start: 20200428

REACTIONS (7)
  - Product use in unapproved indication [Unknown]
  - Product dispensing error [Unknown]
  - Dry mouth [Recovered/Resolved]
  - Oral herpes [Recovered/Resolved]
  - Myocardial infarction [Unknown]
  - Accidental exposure to product [Unknown]
  - Expired product administered [Unknown]

NARRATIVE: CASE EVENT DATE: 201903
